FAERS Safety Report 13973593 (Version 3)
Quarter: 2018Q4

REPORT INFORMATION
  Report Type: Spontaneous
  Country: JP (occurrence: JP)
  Receive Date: 20170915
  Receipt Date: 20181023
  Transmission Date: 20190204
  Serious: Yes (Hospitalization, Other)
  Sender: FDA-Public Use
  Company Number: JP-PFIZER INC-2017392849

PATIENT
  Age: 66 Year
  Sex: Male

DRUGS (7)
  1. INLYTA [Suspect]
     Active Substance: AXITINIB
     Dosage: 12 MG/24H, UNK
     Dates: start: 201405
  2. SORAFENIB [Concomitant]
     Active Substance: SORAFENIB
     Indication: NEOPLASM PROGRESSION
     Dosage: 800 MG/24H, UNK
  3. INLYTA [Suspect]
     Active Substance: AXITINIB
     Dosage: 6 MG/24H, UNK
  4. INLYTA [Suspect]
     Active Substance: AXITINIB
     Dosage: 14 MG/24H, UNK
     Dates: start: 201512
  5. INLYTA [Suspect]
     Active Substance: AXITINIB
     Indication: LUNG CANCER METASTATIC
     Dosage: 10 MG/24H, UNK
     Dates: start: 201302
  6. INLYTA [Suspect]
     Active Substance: AXITINIB
     Dosage: 10 MG/24H, UNK
  7. SORAFENIB [Concomitant]
     Active Substance: SORAFENIB
     Dosage: 400 MG/24H, UNK
     Dates: start: 201103

REACTIONS (9)
  - Aortic dissection [Unknown]
  - Hypertension [Unknown]
  - Fatigue [Unknown]
  - Back pain [Unknown]
  - Neoplasm progression [Unknown]
  - Cardiomyopathy [Unknown]
  - Cardiac dysfunction [Unknown]
  - Proteinuria [Unknown]
  - Palpitations [Unknown]

NARRATIVE: CASE EVENT DATE: 201508
